FAERS Safety Report 16669080 (Version 1)
Quarter: 2019Q3

REPORT INFORMATION
  Report Type: Spontaneous
  Country: US (occurrence: US)
  Receive Date: 20190805
  Receipt Date: 20190805
  Transmission Date: 20191004
  Serious: Yes (Life-Threatening, Hospitalization)
  Sender: FDA-Public Use
  Company Number: None

PATIENT
  Age: 61 Year
  Sex: Female

DRUGS (1)
  1. SIMPONI [Suspect]
     Active Substance: GOLIMUMAB
     Dosage: ?          OTHER FREQUENCY:MONTHLY;?
     Route: 058
     Dates: start: 20180118

REACTIONS (1)
  - Renal failure [None]

NARRATIVE: CASE EVENT DATE: 20190701
